FAERS Safety Report 6788043-4 (Version None)
Quarter: 2010Q2

REPORT INFORMATION
  Report Type: 
  Country: None (occurrence: None)
  Receive Date: 20100623
  Receipt Date: 20080218
  Transmission Date: 20101027
  Serious: No
  Sender: FDA-Public Use
  Company Number: US-PFIZER INC-2007093561

PATIENT
  Sex: Female

DRUGS (4)
  1. XALATAN [Suspect]
     Indication: INTRAOCULAR PRESSURE INCREASED
     Dates: start: 20070301
  2. XALATAN [Suspect]
     Indication: GLAUCOMA
  3. VITAMIN D [Concomitant]
  4. CALCIUM CARBONATE [Concomitant]

REACTIONS (3)
  - DRUG DOSE OMISSION [None]
  - EYE IRRITATION [None]
  - OCULAR HYPERAEMIA [None]
